FAERS Safety Report 6960765-1 (Version None)
Quarter: 2010Q3

REPORT INFORMATION
  Report Type: 
  Country: None (occurrence: None)
  Receive Date: 20100823
  Receipt Date: 20100702
  Transmission Date: 20110219
  Serious: No
  Sender: FDA-Public Use
  Company Number: 015222

PATIENT
  Sex: Female

DRUGS (4)
  1. CIMZIA [Suspect]
     Indication: RHEUMATOID ARTHRITIS
     Dosage: (SUBCUTANEOUS)
     Route: 058
     Dates: start: 20100627
  2. METHOTREXATE [Concomitant]
  3. PREDNISONE [Concomitant]
  4. NABUMETONE [Concomitant]

REACTIONS (4)
  - COUGH [None]
  - HEADACHE [None]
  - INCORRECT DOSE ADMINISTERED [None]
  - PYREXIA [None]
